FAERS Safety Report 8571318 (Version 2)
Quarter: 2013Q2

REPORT INFORMATION
  Report Type: Spontaneous
  Country: US (occurrence: US)
  Receive Date: 20120521
  Receipt Date: 20130507
  Transmission Date: 20140414
  Serious: Yes (Hospitalization, Other)
  Sender: FDA-Public Use
  Company Number: US-ROCHE-1069745

PATIENT
  Age: 14 Year
  Sex: Male

DRUGS (6)
  1. ACCUTANE [Suspect]
     Indication: ACNE
     Dosage: DAILY
     Route: 048
     Dates: start: 20040321, end: 20040422
  2. ACCUTANE [Suspect]
     Dosage: 40 MG ON ODD DAYS AND 80 MG ON EVEN DAYS
     Route: 048
     Dates: start: 20040423, end: 20040710
  3. ACCUTANE [Suspect]
     Dosage: 40 MG 2 CAP EVERY DAY
     Route: 048
     Dates: start: 20040711, end: 20040917
  4. ACCUTANE [Suspect]
     Route: 048
     Dates: end: 2006
  5. AMNESTEEM [Suspect]
     Indication: ACNE
     Route: 065
     Dates: start: 20040322, end: 20040422
  6. CLARAVIS [Suspect]
     Indication: ACNE
     Route: 065
     Dates: start: 20060216, end: 20060316

REACTIONS (10)
  - Colitis ulcerative [Unknown]
  - Lower gastrointestinal haemorrhage [Unknown]
  - Crohn^s disease [Unknown]
  - Inflammatory bowel disease [Unknown]
  - Irritable bowel syndrome [Unknown]
  - Anxiety [Unknown]
  - Anaemia [Unknown]
  - Epistaxis [Unknown]
  - Blood triglycerides increased [Unknown]
  - Alanine aminotransferase increased [Unknown]
